FAERS Safety Report 15222883 (Version 1)
Quarter: 2018Q3

REPORT INFORMATION
  Report Type: Spontaneous
  Country: US (occurrence: US)
  Receive Date: 20180731
  Receipt Date: 20180731
  Transmission Date: 20181010
  Serious: No
  Sender: FDA-Public Use
  Company Number: US-BEH-2018093255

PATIENT
  Sex: Female
  Weight: 69.93 kg

DRUGS (17)
  1. HAEGARDA [Suspect]
     Active Substance: HUMAN C1-ESTERASE INHIBITOR
     Dosage: 5000 IU, BIW, Q 3?4 DAYS
     Route: 058
     Dates: start: 20171215
  2. ATENOLOL. [Concomitant]
     Active Substance: ATENOLOL
  3. ASPIRIN. [Concomitant]
     Active Substance: ASPIRIN
  4. FLEXERIL [Concomitant]
     Active Substance: CYCLOBENZAPRINE HYDROCHLORIDE
  5. HAEGARDA [Suspect]
     Active Substance: HUMAN C1-ESTERASE INHIBITOR
     Indication: HEREDITARY ANGIOEDEMA
     Dosage: UNK
     Route: 058
  6. KLONOPIN [Concomitant]
     Active Substance: CLONAZEPAM
  7. VENTOLIN [Concomitant]
     Active Substance: ALBUTEROL SULFATE
  8. TOPAMAX [Concomitant]
     Active Substance: TOPIRAMATE
  9. NORCO [Concomitant]
     Active Substance: ACETAMINOPHEN\HYDROCODONE BITARTRATE
  10. NEURONTIN [Concomitant]
     Active Substance: GABAPENTIN
  11. MOBIC [Concomitant]
     Active Substance: MELOXICAM
  12. HAEGARDA [Suspect]
     Active Substance: HUMAN C1-ESTERASE INHIBITOR
     Indication: PROPHYLAXIS
     Dosage: UNK
     Route: 058
  13. EPIPEN [Concomitant]
     Active Substance: EPINEPHRINE
  14. ATORVASTATIN [Concomitant]
     Active Substance: ATORVASTATIN
  15. MELATONIN [Concomitant]
     Active Substance: MELATONIN
  16. MULTIVITAMIN                       /00097801/ [Concomitant]
     Active Substance: VITAMINS
  17. XARELTO [Concomitant]
     Active Substance: RIVAROXABAN

REACTIONS (1)
  - Gastroenteritis viral [Unknown]
